FAERS Safety Report 19900366 (Version 2)
Quarter: 2021Q4

REPORT INFORMATION
  Report Type: Report from Study
  Country: US (occurrence: US)
  Receive Date: 20210929
  Receipt Date: 20211014
  Transmission Date: 20220303
  Serious: Yes (Other)
  Sender: FDA-Public Use
  Company Number: US-JAZZ-2021-US-018146

PATIENT
  Age: 34 Year
  Sex: Female

DRUGS (13)
  1. XYREM [Suspect]
     Active Substance: SODIUM OXYBATE
     Indication: Narcolepsy
     Dosage: 2.25 GRAM, BID
     Route: 048
     Dates: start: 201610, end: 201612
  2. XYREM [Suspect]
     Active Substance: SODIUM OXYBATE
     Dosage: DOSE ADJUSTMENTS
     Route: 048
     Dates: start: 201612, end: 202105
  3. XYREM [Suspect]
     Active Substance: SODIUM OXYBATE
     Dosage: 3.25 GRAM, BID
     Route: 048
     Dates: start: 202105
  4. GABAPENTIN [Concomitant]
     Active Substance: GABAPENTIN
     Indication: Pain
  5. LORATADINE [Concomitant]
     Active Substance: LORATADINE
     Indication: Hypersensitivity
  6. SIMVASTATIN [Concomitant]
     Active Substance: SIMVASTATIN
     Indication: Blood cholesterol increased
  7. ARMODAFINIL [Concomitant]
     Active Substance: ARMODAFINIL
     Indication: Poor quality sleep
  8. PODOFILOX [Concomitant]
     Active Substance: PODOFILOX
     Indication: Product used for unknown indication
  9. SUMATRIPTAN SUCCINATE [Concomitant]
     Active Substance: SUMATRIPTAN SUCCINATE
     Indication: Migraine
  10. SERTRALINE HYDROCHLORIDE [Concomitant]
     Active Substance: SERTRALINE HYDROCHLORIDE
     Indication: Depression
  11. SERTRALINE HYDROCHLORIDE [Concomitant]
     Active Substance: SERTRALINE HYDROCHLORIDE
     Indication: Anxiety
  12. ALBUTEROL [Concomitant]
     Active Substance: ALBUTEROL
     Indication: Asthma
  13. FLUTICASONE [Concomitant]
     Active Substance: FLUTICASONE
     Indication: Asthma

REACTIONS (3)
  - Basal cell naevus syndrome [Recovered/Resolved]
  - Fibrocystic breast disease [Unknown]
  - Polycystic ovaries [Unknown]

NARRATIVE: CASE EVENT DATE: 20180122
